FAERS Safety Report 20981796 (Version 2)
Quarter: 2022Q3

REPORT INFORMATION
  Report Type: Other
  Country: BD (occurrence: None)
  Receive Date: 20220620
  Receipt Date: 20220717
  Transmission Date: 20221026
  Serious: Yes (Hospitalization)
  Sender: FDA-Public Use
  Company Number: BD-ROCHE-3108285

PATIENT
  Age: 60 Year
  Sex: Female

DRUGS (1)
  1. AVASTIN [Suspect]
     Active Substance: BEVACIZUMAB
     Indication: Colon cancer
     Route: 065

REACTIONS (5)
  - Vomiting [Unknown]
  - Abdominal pain [Recovering/Resolving]
  - Headache [Recovered/Resolved]
  - Dysentery [Unknown]
  - Asthenia [Unknown]

NARRATIVE: CASE EVENT DATE: 20220611
